FAERS Safety Report 6346488-0 (Version None)
Quarter: 2009Q3

REPORT INFORMATION
  Report Type: 
  Country: None (occurrence: None)
  Receive Date: 20090909
  Receipt Date: 20090903
  Transmission Date: 20100115
  Serious: Yes (Other)
  Sender: FDA-Public Use
  Company Number: US-ALLERGAN-0912358US

PATIENT

DRUGS (2)
  1. BOTOX [Suspect]
     Indication: TORTICOLLIS
  2. BOTOX [Suspect]
     Dosage: UNK

REACTIONS (3)
  - ANAPHYLACTIC REACTION [None]
  - OBSTRUCTIVE AIRWAYS DISORDER [None]
  - RASH [None]
